FAERS Safety Report 6085358-2 (Version None)
Quarter: 2009Q1

REPORT INFORMATION
  Report Type: 
  Country: None (occurrence: None)
  Receive Date: 20090218
  Receipt Date: 20090211
  Transmission Date: 20090719
  Serious: Yes (Death)
  Sender: FDA-Public Use
  Company Number: 2009-191431-NL

PATIENT

DRUGS (1)
  1. ETONOGESTREL [Suspect]
     Dosage: DF;NI
     Dates: end: 20081112

REACTIONS (6)
  - ABORTION SPONTANEOUS [None]
  - DEATH NEONATAL [None]
  - INTRA-UTERINE DEATH [None]
  - PREGNANCY WITH CONTRACEPTIVE DEVICE [None]
  - PREMATURE LABOUR [None]
  - TWIN PREGNANCY [None]
